FAERS Safety Report 22316273 (Version 1)
Quarter: 2023Q2

REPORT INFORMATION
  Report Type: Spontaneous
  Country: US (occurrence: US)
  Receive Date: 20230513
  Receipt Date: 20230513
  Transmission Date: 20230721
  Serious: Yes (Hospitalization)
  Sender: FDA-Public Use
  Company Number: US-STRIDES ARCOLAB LIMITED-2023SP006949

PATIENT
  Age: 33 Year
  Sex: Male

DRUGS (3)
  1. GLYBURIDE [Interacting]
     Active Substance: GLYBURIDE
     Indication: Anxiety
     Dosage: 2 DOSAGE FORM (2 UNMARKED LIGHT BLUE PILLS)
     Route: 048
  2. ALCOHOL [Interacting]
     Active Substance: ALCOHOL
     Indication: Asthenia
     Dosage: UNK
     Route: 065
  3. ALCOHOL [Interacting]
     Active Substance: ALCOHOL
     Indication: Hyperhidrosis

REACTIONS (7)
  - Drug abuse [Unknown]
  - Alcohol interaction [Unknown]
  - Asthenia [Recovered/Resolved]
  - Loss of consciousness [Recovered/Resolved]
  - Hyperhidrosis [Recovered/Resolved]
  - Adulterated product [Unknown]
  - Hypoglycaemia [Recovered/Resolved]
